FAERS Safety Report 20537152 (Version 1)
Quarter: 2022Q1

REPORT INFORMATION
  Report Type: Spontaneous
  Country: CN (occurrence: CN)
  Receive Date: 20220302
  Receipt Date: 20220302
  Transmission Date: 20220423
  Serious: Yes (Hospitalization)
  Sender: FDA-Public Use
  Company Number: CN-GLAXOSMITHKLINE-CNCH2022APC008216

PATIENT
  Age: 26 Year
  Sex: Female
  Weight: 40 kg

DRUGS (2)
  1. IBUPROFEN [Suspect]
     Active Substance: IBUPROFEN
     Indication: Nasopharyngitis
     Dosage: 1 DF, TID
     Route: 048
     Dates: start: 20220213, end: 20220217
  2. UMIFENOVIR HYDROCHLORIDE [Suspect]
     Active Substance: UMIFENOVIR HYDROCHLORIDE
     Indication: Nasopharyngitis
     Dosage: 0.1 G, TID
     Route: 048
     Dates: start: 20220213, end: 20220220

REACTIONS (8)
  - Drug eruption [Recovering/Resolving]
  - Rash papular [Recovering/Resolving]
  - Pruritus [Recovering/Resolving]
  - Erythema [Recovering/Resolving]
  - Rash papular [Recovering/Resolving]
  - Scratch [Recovering/Resolving]
  - Scab [Recovering/Resolving]
  - Product use issue [Unknown]

NARRATIVE: CASE EVENT DATE: 20220213
